FAERS Safety Report 11316665 (Version 3)
Quarter: 2016Q2

REPORT INFORMATION
  Report Type: Report from Study
  Country: BR (occurrence: BR)
  Receive Date: 20150728
  Receipt Date: 20160422
  Transmission Date: 20160815
  Serious: Yes (Hospitalization, Other)
  Sender: FDA-Public Use
  Company Number: PHHY2015BR086417

PATIENT
  Age: 68 Year
  Sex: Female
  Weight: 70 kg

DRUGS (5)
  1. CLINDAMYCIN HYDROCHLORIDE. [Concomitant]
     Active Substance: CLINDAMYCIN HYDROCHLORIDE
     Indication: HYPERSENSITIVITY
     Dosage: 1 DF, QID
     Route: 048
     Dates: start: 20150728
  2. ACLASTA [Suspect]
     Active Substance: ZOLEDRONIC ACID
     Indication: OSTEOPOROSIS
     Dosage: 5 MG, EVERY 2 YEARS
     Route: 042
     Dates: start: 201504
  3. CAPTOPRIL. [Concomitant]
     Active Substance: CAPTOPRIL
     Indication: HYPERTENSION
     Dosage: 1 DF, BID
     Route: 048
  4. RANITIDINE HYDROCHLORIDE. [Concomitant]
     Active Substance: RANITIDINE HYDROCHLORIDE
     Indication: GASTROINTESTINAL DISORDER
     Dosage: 1 DF, BID
     Route: 048
     Dates: start: 20150707
  5. HIDANTAL [Concomitant]
     Active Substance: PHENYTOIN SODIUM
     Indication: SEIZURE
     Dosage: 1 DF, TID
     Route: 048
     Dates: start: 20150707

REACTIONS (11)
  - Aneurysm [Recovering/Resolving]
  - Aneurysm ruptured [Unknown]
  - Cerebrovascular accident [Recovering/Resolving]
  - Skin ulcer [Recovering/Resolving]
  - Tremor [Recovered/Resolved]
  - Ischaemia [Unknown]
  - Aphasia [Recovering/Resolving]
  - Nasopharyngitis [Recovered/Resolved]
  - Malaise [Unknown]
  - Haemorrhage [Unknown]
  - Somnolence [Recovered/Resolved]

NARRATIVE: CASE EVENT DATE: 201504
